FAERS Safety Report 14203681 (Version 2)
Quarter: 2018Q1

REPORT INFORMATION
  Report Type: Spontaneous
  Country: US (occurrence: US)
  Receive Date: 20171120
  Receipt Date: 20180308
  Transmission Date: 20180508
  Serious: No
  Sender: FDA-Public Use
  Company Number: US-PFIZER INC-2017495038

PATIENT
  Age: 70 Year
  Sex: Female
  Weight: 58.97 kg

DRUGS (11)
  1. TRAMADOL. [Concomitant]
     Active Substance: TRAMADOL
     Indication: DISCOMFORT
     Dosage: 100 MG, 2X/DAY (50MG, TWO TABLETS AT NIGHT AND TWO TABLETS IN THE MORNING)
  2. METHOTREXATE. [Concomitant]
     Active Substance: METHOTREXATE
     Indication: RHEUMATOID ARTHRITIS
     Dosage: 25 MG, WEEKLY (2.5MG, 5 TABLETS AT NIGHT 2 DAYS IN A ROW)
  3. FOLIC ACID. [Concomitant]
     Active Substance: FOLIC ACID
     Indication: STOMATITIS
     Dosage: 2400 UG, 1X/DAY (800MCG, THREE AT NIGHT)
  4. VITAMIN D3 [Concomitant]
     Active Substance: CHOLECALCIFEROL
     Dosage: 2000 IU, 1X/DAY (2000 UNITS, AT NIGHT)
  5. XELJANZ XR [Suspect]
     Active Substance: TOFACITINIB CITRATE
     Indication: RHEUMATOID ARTHRITIS
     Dosage: 11 MG, 1X/DAY (11MG, ONE TABLET BY MOUTH AT NIGHT)
     Route: 048
     Dates: start: 2017, end: 201802
  6. METOPROLOL ER [Concomitant]
     Active Substance: METOPROLOL SUCCINATE
     Indication: BLOOD PRESSURE ABNORMAL
     Dosage: 50 MG, 1X/DAY (50MG, ONE TABLET AT NIGHT)
  7. TRAZODONE [Concomitant]
     Active Substance: TRAZODONE HYDROCHLORIDE
     Indication: DEPRESSION
  8. LEVOTHYROXINE. [Concomitant]
     Active Substance: LEVOTHYROXINE
     Indication: THYROID DISORDER
     Dosage: 50 UG, 1X/DAY
  9. FIBER [Concomitant]
     Active Substance: PSYLLIUM HUSK
     Indication: BOWEL MOVEMENT IRREGULARITY
     Dosage: 500 MG, DAILY (500MG, ONE DAILY)
  10. TRAZODONE [Concomitant]
     Active Substance: TRAZODONE HYDROCHLORIDE
     Indication: SLEEP DISORDER
     Dosage: 0.5 DF, 1X/DAY (50MG, HALF TABLET AT NIGHT)
  11. FUROSEMIDE. [Concomitant]
     Active Substance: FUROSEMIDE
     Indication: SWELLING
     Dosage: 0.5 DF, 1X/DAY (20 MG HALF TABLET IN THE MORNING)

REACTIONS (4)
  - Abdominal pain upper [Not Recovered/Not Resolved]
  - Dyspepsia [Not Recovered/Not Resolved]
  - Nausea [Recovering/Resolving]
  - Upper respiratory tract infection [Recovered/Resolved]

NARRATIVE: CASE EVENT DATE: 201802
